FAERS Safety Report 19025448 (Version 2)
Quarter: 2021Q1

REPORT INFORMATION
  Report Type: Spontaneous
  Country: TW (occurrence: TW)
  Receive Date: 20210318
  Receipt Date: 20210331
  Transmission Date: 20210420
  Serious: Yes (Hospitalization, Other)
  Sender: FDA-Public Use
  Company Number: TW-ACCORD-219980

PATIENT
  Age: 28 Year
  Sex: Female
  Weight: 47 kg

DRUGS (7)
  1. PSEUDOEPHEDRINE. [Suspect]
     Active Substance: PSEUDOEPHEDRINE HYDROCHLORIDE
     Indication: OBESITY
  2. FLUOXETINE [Suspect]
     Active Substance: FLUOXETINE HYDROCHLORIDE
     Indication: OBESITY
  3. METFORMIN [Suspect]
     Active Substance: METFORMIN HYDROCHLORIDE
     Indication: OBESITY
  4. OXAZOLAM [Suspect]
     Active Substance: OXAZOLAM
     Indication: OBESITY
  5. TOPIRAMATE. [Suspect]
     Active Substance: TOPIRAMATE
     Indication: OBESITY
  6. HYDROCHLOROTHIAZIDE. [Suspect]
     Active Substance: HYDROCHLOROTHIAZIDE
     Indication: OBESITY
  7. LIOTHYRONINE [Suspect]
     Active Substance: LIOTHYRONINE
     Indication: OBESITY

REACTIONS (1)
  - Myopathy [Recovered/Resolved]
